FAERS Safety Report 22590797 (Version 1)
Quarter: 2023Q2

REPORT INFORMATION
  Report Type: Report from Study
  Country: US (occurrence: US)
  Receive Date: 20230612
  Receipt Date: 20230612
  Transmission Date: 20230721
  Serious: No
  Sender: FDA-Public Use
  Company Number: US-INCYTE CORPORATION-2023IN004615

PATIENT

DRUGS (2)
  1. JAKAFI [Suspect]
     Active Substance: RUXOLITINIB
     Indication: Myeloproliferative neoplasm
     Dosage: 15 MILLIGRAM, BID
     Route: 048
     Dates: start: 20220801
  2. JAKAFI [Suspect]
     Active Substance: RUXOLITINIB
     Dosage: 15MG (1/2TABLET), BID
     Route: 048

REACTIONS (2)
  - Wrong technique in product usage process [Unknown]
  - Off label use [Unknown]

NARRATIVE: CASE EVENT DATE: 20220801
